FAERS Safety Report 6165730-2 (Version None)
Quarter: 2009Q2

REPORT INFORMATION
  Report Type: 
  Country: None (occurrence: None)
  Receive Date: 20090423
  Receipt Date: 20090417
  Transmission Date: 20091009
  Serious: Yes (Other)
  Sender: FDA-Public Use
  Company Number: US-JNJCH-2009010759

PATIENT
  Age: 24 Year
  Sex: Male
  Weight: 72.6 kg

DRUGS (1)
  1. LISTERINE WHITENING QUICK DISSOLVING STRIPS [Suspect]
     Indication: DENTAL DISORDER PROPHYLAXIS
     Dosage: TEXT:TWO STRIPS ONCE
     Route: 048
     Dates: start: 20090417, end: 20090417

REACTIONS (2)
  - BLISTER [None]
  - THERMAL BURN [None]
